FAERS Safety Report 6565636-0 (Version None)
Quarter: 2010Q1

REPORT INFORMATION
  Report Type: 
  Country: None (occurrence: None)
  Receive Date: 20100201
  Receipt Date: 20091218
  Transmission Date: 20100710
  Serious: Yes (Hospitalization, Other)
  Sender: FDA-Public Use
  Company Number: US-BAXTER-2009BH013291

PATIENT
  Age: 63 Year
  Sex: Male
  Weight: 86 kg

DRUGS (10)
  1. HEPARIN SODIUM INJECTION [Suspect]
     Indication: DRUG USE FOR UNKNOWN INDICATION
     Route: 042
     Dates: start: 20071217, end: 20071218
  2. HEPARIN SODIUM INJECTION [Suspect]
     Indication: CORONARY ARTERY BYPASS
     Route: 042
     Dates: start: 20071217, end: 20071218
  3. HEPARIN SODIUM INJECTION [Suspect]
     Route: 042
     Dates: start: 20071230, end: 20080106
  4. HEPARIN SODIUM INJECTION [Suspect]
     Route: 042
     Dates: start: 20071230, end: 20080106
  5. HEPARIN SODIUM INJECTION [Suspect]
     Route: 042
     Dates: start: 20080210, end: 20080211
  6. HEPARIN SODIUM INJECTION [Suspect]
     Route: 042
     Dates: start: 20080210, end: 20080211
  7. ATORVASTATIN [Concomitant]
     Indication: DRUG USE FOR UNKNOWN INDICATION
     Route: 065
  8. CENTRUM SILVER [Concomitant]
     Indication: DRUG USE FOR UNKNOWN INDICATION
     Route: 065
  9. LISINOPRIL [Concomitant]
     Indication: DRUG USE FOR UNKNOWN INDICATION
     Route: 065
  10. CLARITIN [Concomitant]
     Indication: DRUG USE FOR UNKNOWN INDICATION
     Route: 065

REACTIONS (11)
  - CARDIAC FAILURE CONGESTIVE [None]
  - CELLULITIS [None]
  - DYSPNOEA [None]
  - HYPERSENSITIVITY [None]
  - HYPOKALAEMIA [None]
  - HYPOTENSION [None]
  - LABILE BLOOD PRESSURE [None]
  - LEUKOCYTOSIS [None]
  - LOSS OF CONSCIOUSNESS [None]
  - PLEURAL EFFUSION [None]
  - POSTOPERATIVE WOUND INFECTION [None]
